FAERS Safety Report 9027053 (Version 2)
Quarter: 2014Q1

REPORT INFORMATION
  Report Type: Spontaneous
  Country: US (occurrence: US)
  Receive Date: 20130123
  Receipt Date: 20140131
  Transmission Date: 20141002
  Serious: Yes (Life-Threatening, Hospitalization)
  Sender: FDA-Public Use
  Company Number: US-B.I. PHARMACEUTICALS,INC./RIDGEFIELD-2013-BI-01141BP

PATIENT
  Age: 86 Year
  Sex: Male
  Weight: 78.02 kg

DRUGS (2)
  1. PRADAXA [Suspect]
     Indication: ANTICOAGULANT THERAPY
     Dates: start: 20101112, end: 201101
  2. PRADAXA [Suspect]
     Indication: ATRIAL FLUTTER

REACTIONS (7)
  - Gastrointestinal haemorrhage [Unknown]
  - Anaemia [Unknown]
  - Haemoglobin decreased [Recovered/Resolved]
  - Coagulopathy [Unknown]
  - Fall [Unknown]
  - Hip fracture [Unknown]
  - Renal failure acute [Unknown]
